FAERS Safety Report 4901025-X (Version None)
Quarter: 2006Q1

REPORT INFORMATION
  Report Type: 
  Country: None (occurrence: None)
  Receive Date: 20060201
  Receipt Date: 20060123
  Transmission Date: 20060701
  Serious: Yes (Other)
  Sender: FDA-Public Use
  Company Number: FR_051007249

PATIENT
  Age: 52 Year
  Sex: Female

DRUGS (3)
  1. RALOXIFENE HCL [Suspect]
     Indication: OSTEOPOROSIS
     Dosage: DAILY(1/D), ORAL
     Route: 048
     Dates: start: 20030101, end: 20030301
  2. RALOXIFENE HCL [Suspect]
     Indication: OSTEOPOROSIS
     Dosage: DAILY(1/D), ORAL
     Route: 048
     Dates: start: 20040101, end: 20041101
  3. HOMEOPATIC PREPARATION [Concomitant]

REACTIONS (2)
  - BREAST CANCER STAGE III [None]
  - CONTRALATERAL BREAST CANCER [None]
